FAERS Safety Report 16774663 (Version 1)
Quarter: 2019Q3

REPORT INFORMATION
  Report Type: Spontaneous
  Country: US (occurrence: US)
  Receive Date: 20190905
  Receipt Date: 20190905
  Transmission Date: 20191005
  Serious: No
  Sender: FDA-Public Use
  Company Number: US-009507513-1908USA005487

PATIENT
  Age: 31 Year
  Sex: Female

DRUGS (7)
  1. LEUPROLIDE [Concomitant]
     Active Substance: LEUPROLIDE
  2. FOLLISTIM AQ [Suspect]
     Active Substance: FOLLITROPIN
     Indication: INFERTILITY FEMALE
     Dosage: 150 U, DAILY; STRENGTH: 600 IU/0.72 ML
     Route: 058
     Dates: start: 20190726
  3. METFORMIN [Concomitant]
     Active Substance: METFORMIN HYDROCHLORIDE
  4. MENOPUR [Concomitant]
     Active Substance: FOLLITROPIN\LUTEINIZING HORMONE
  5. GONADOTROPIN, CHORIONIC [Concomitant]
     Active Substance: CHORIOGONADOTROPIN ALFA
  6. ENDOMETRIN [Concomitant]
     Active Substance: PROGESTERONE
  7. GANIRELIX ACETATE INJECTION [Suspect]
     Active Substance: GANIRELIX ACETATE
     Indication: INFERTILITY FEMALE
     Dosage: 250 MICROGRAM, DAILY; STRENGTH 10000 (UNITS NOT REPORTED)
     Route: 058
     Dates: start: 20190726

REACTIONS (1)
  - Urticaria [Unknown]

NARRATIVE: CASE EVENT DATE: 20190812
